FAERS Safety Report 24868120 (Version 1)
Quarter: 2025Q1

REPORT INFORMATION
  Report Type: Spontaneous
  Country: JP (occurrence: JP)
  Receive Date: 20250121
  Receipt Date: 20250121
  Transmission Date: 20250409
  Serious: Yes (Other)
  Sender: NX DEVELOPMENT CORPORATION
  Company Number: JP-sbiph-S000182410

PATIENT
  Age: 73 Year
  Sex: Male
  Weight: 66.3 kg

DRUGS (4)
  1. AMINOLEVULINIC ACID HYDROCHLORIDE [Suspect]
     Active Substance: AMINOLEVULINIC ACID HYDROCHLORIDE
     Indication: Bladder transitional cell carcinoma
     Dosage: 1240 MG
     Route: 048
     Dates: start: 20240513, end: 20240513
  2. PROPOFOL [Concomitant]
     Active Substance: PROPOFOL
  3. AMLODIPINE [Concomitant]
     Active Substance: AMLODIPINE BESYLATE
     Indication: Hypertension
     Route: 048
  4. CANDESARTAN [Concomitant]
     Active Substance: CANDESARTAN
     Indication: Hypertension
     Route: 048

REACTIONS (2)
  - Hypotension [Recovered/Resolved]
  - Electrocardiogram ST segment depression [Unknown]

NARRATIVE: CASE EVENT DATE: 20240513
